FAERS Safety Report 5706783-2 (Version None)
Quarter: 2008Q2

REPORT INFORMATION
  Report Type: 
  Country: None (occurrence: None)
  Receive Date: 20080415
  Receipt Date: 20080415
  Transmission Date: 20081010
  Serious: Yes (Hospitalization)
  Sender: FDA-Public Use
  Company Number: None

PATIENT
  Age: 81 Year
  Sex: Male
  Weight: 65.7716 kg

DRUGS (1)
  1. BENZTROPINE MESYLATE 0.5MG [Suspect]
     Indication: TREMOR
     Dosage: ONE TABLET TWICE DAILY PO
     Route: 048
     Dates: start: 20080403, end: 20080407

REACTIONS (2)
  - DEREALISATION [None]
  - HALLUCINATION [None]
